FAERS Safety Report 14470469 (Version 4)
Quarter: 2018Q3

REPORT INFORMATION
  Report Type: Spontaneous
  Country: FR (occurrence: FR)
  Receive Date: 20180131
  Receipt Date: 20180801
  Transmission Date: 20181010
  Serious: Yes (Life-Threatening, Other)
  Sender: FDA-Public Use
  Company Number: PHHY2018FR013624

PATIENT
  Age: 37 Year
  Sex: Male

DRUGS (9)
  1. AZACTAM [Suspect]
     Active Substance: AZTREONAM
     Indication: ANTIBIOTIC PROPHYLAXIS
     Dosage: 1 DF, TOTAL
     Route: 040
     Dates: start: 20171011, end: 20171011
  2. AZACTAM [Suspect]
     Active Substance: AZTREONAM
     Dosage: 1 G, TOTAL
     Route: 040
     Dates: start: 20171011, end: 20171011
  3. PROPOFOL PANPHARMA [Suspect]
     Active Substance: PROPOFOL
     Indication: INDUCTION OF ANAESTHESIA
     Dosage: UNK
     Route: 042
     Dates: start: 20171011, end: 20171011
  4. GENTAMICINE PANPHARMA [Suspect]
     Active Substance: GENTAMICIN
     Indication: ANTIBIOTIC PROPHYLAXIS
     Dosage: 400 MG, TOTAL
     Route: 042
     Dates: start: 20171011, end: 20171011
  5. METHADONE [Concomitant]
     Active Substance: METHADONE HYDROCHLORIDE
     Indication: DRUG DEPENDENCE
     Dosage: UNK
     Route: 065
  6. VANCOMYCIN SANDOZ [Suspect]
     Active Substance: VANCOMYCIN
     Indication: ANTIBIOTIC PROPHYLAXIS
     Dosage: 800 MG, UNK
     Route: 041
     Dates: start: 20171011, end: 20171011
  7. VANCOMYCIN SANDOZ [Suspect]
     Active Substance: VANCOMYCIN
     Dosage: 1 G, UNK
     Route: 041
     Dates: start: 20171011, end: 20171011
  8. PARACETAMOL B. BRAUN [Suspect]
     Active Substance: ACETAMINOPHEN
     Indication: PAIN PROPHYLAXIS
     Dosage: 1 G, TOTAL
     Route: 042
  9. COCAINE [Concomitant]
     Active Substance: COCAINE
     Indication: PRODUCT USED FOR UNKNOWN INDICATION
     Dosage: UNK
     Route: 065

REACTIONS (8)
  - Tachycardia [Unknown]
  - Pallor [Unknown]
  - Blood pressure diastolic decreased [Unknown]
  - Anaphylactic shock [Recovering/Resolving]
  - Dyspnoea [Unknown]
  - Face oedema [Unknown]
  - Localised oedema [Unknown]
  - Urticaria [Unknown]

NARRATIVE: CASE EVENT DATE: 20171011
